FAERS Safety Report 5972777-5 (Version None)
Quarter: 2008Q4

REPORT INFORMATION
  Report Type: 
  Country: None (occurrence: None)
  Receive Date: 20081201
  Receipt Date: 20081121
  Transmission Date: 20090506
  Serious: Yes (Hospitalization)
  Sender: FDA-Public Use
  Company Number: US-MERCK-0811USA03770

PATIENT
  Age: 82 Year
  Sex: Male

DRUGS (3)
  1. JANUMET [Suspect]
     Indication: DIABETES MELLITUS
     Route: 048
     Dates: start: 20070101, end: 20081001
  2. JANUMET [Suspect]
     Route: 048
     Dates: start: 20081001, end: 20081120
  3. COUMADIN [Suspect]
     Route: 065

REACTIONS (1)
  - HAEMORRHAGE [None]
